FAERS Safety Report 23663096 (Version 3)
Quarter: 2024Q2

REPORT INFORMATION
  Report Type: Report from Study
  Country: SG (occurrence: SG)
  Receive Date: 20240322
  Receipt Date: 20240429
  Transmission Date: 20240716
  Serious: Yes (Hospitalization)
  Sender: FDA-Public Use
  Company Number: SG-Eisai-EC-2024-162097

PATIENT
  Age: 57 Year
  Sex: Female

DRUGS (7)
  1. LENVATINIB [Suspect]
     Active Substance: LENVATINIB
     Indication: Breast cancer
     Dosage: STRENGTH: 8 MG
     Route: 048
     Dates: start: 20240228
  2. LETROZOLE [Suspect]
     Active Substance: LETROZOLE
     Indication: Breast cancer
     Route: 048
     Dates: start: 20240228
  3. PEMBROLIZUMAB [Suspect]
     Active Substance: PEMBROLIZUMAB
     Indication: Breast cancer
     Route: 042
     Dates: start: 20240312
  4. TELMISARTAN [Concomitant]
     Active Substance: TELMISARTAN
     Dates: start: 20240312
  5. ACETAMINOPHEN [Concomitant]
     Active Substance: ACETAMINOPHEN
     Dates: start: 20240229
  6. FEXOFENADINE [Concomitant]
     Active Substance: FEXOFENADINE HYDROCHLORIDE
     Dates: start: 20240228
  7. ORAL AID [Concomitant]
     Dates: start: 20240228

REACTIONS (4)
  - Hypertension [Recovering/Resolving]
  - Rash [Recovering/Resolving]
  - Pyrexia [Recovered/Resolved]
  - Dizziness [Recovered/Resolved]

NARRATIVE: CASE EVENT DATE: 20240317
